FAERS Safety Report 20612192 (Version 1)
Quarter: 2022Q1

REPORT INFORMATION
  Report Type: Spontaneous
  Country: US (occurrence: US)
  Receive Date: 20220318
  Receipt Date: 20220318
  Transmission Date: 20220423
  Serious: Yes (Hospitalization, Other)
  Sender: FDA-Public Use
  Company Number: US-INCYTE CORPORATION-2022IN002527

PATIENT

DRUGS (1)
  1. JAKAFI [Suspect]
     Active Substance: RUXOLITINIB
     Indication: Systemic lupus erythematosus
     Dosage: 5 MILLIGRAM, BID
     Route: 048

REACTIONS (4)
  - Graft versus host disease [Unknown]
  - Systemic lupus erythematosus [Unknown]
  - Hypervolaemia [Unknown]
  - Off label use [Unknown]
